FAERS Safety Report 9984103 (Version 2)
Quarter: 2014Q1

REPORT INFORMATION
  Report Type: Report from Study
  Country: US (occurrence: US)
  Receive Date: 20140307
  Receipt Date: 20140307
  Transmission Date: 20141002
  Serious: No
  Sender: FDA-Public Use
  Company Number: US-ABBVIE-13P-163-1168901-00

PATIENT
  Age: 59 Year
  Sex: Female

DRUGS (5)
  1. HUMIRA [Suspect]
     Indication: PSORIASIS
     Dosage: DAY 1
     Dates: start: 20130927, end: 20130927
  2. HUMIRA [Suspect]
     Dosage: DAY 8
  3. VOLTAREN [Concomitant]
     Indication: HYPERTENSION
     Dosage: 10/20MG
  4. LOSARTAN [Concomitant]
     Indication: BLOOD CHOLESTEROL INCREASED
  5. IBUPROFEN [Concomitant]
     Indication: PAIN

REACTIONS (7)
  - Hypoaesthesia [Recovered/Resolved]
  - Paraesthesia [Recovered/Resolved]
  - Hypoaesthesia [Recovered/Resolved]
  - Paraesthesia [Recovered/Resolved]
  - Rheumatoid arthritis [Not Recovered/Not Resolved]
  - Device malfunction [Unknown]
  - Drug dose omission [Unknown]
